FAERS Safety Report 4429900-3 (Version None)
Quarter: 2004Q3

REPORT INFORMATION
  Report Type: 
  Country: None (occurrence: None)
  Receive Date: 20040820
  Receipt Date: 20040809
  Transmission Date: 20050211
  Serious: Yes (Death, Other)
  Sender: FDA-Public Use
  Company Number: BR-BRISTOL-MYERS SQUIBB COMPANY-12665832

PATIENT
  Age: 34 Year
  Sex: Male

DRUGS (11)
  1. REYATAZ [Suspect]
     Indication: HIV INFECTION
     Route: 048
     Dates: start: 20040701, end: 20040707
  2. EFAVIRENZ [Suspect]
     Indication: HIV INFECTION
     Dates: start: 20040713, end: 20040719
  3. LAMIVUDINE + ZIDOVUDINE [Suspect]
     Indication: HIV INFECTION
     Dates: start: 20040701, end: 20040719
  4. BACTRIM [Concomitant]
     Dates: start: 20040628, end: 20040707
  5. FLUCONAZOLE [Concomitant]
     Dates: start: 20040628
  6. DIPIRONE [Concomitant]
  7. METOCLOPRAMIDE [Concomitant]
  8. CEFTRIAXONE [Concomitant]
     Dates: start: 20040629, end: 20040712
  9. CLINDAMYCIN [Concomitant]
     Dates: start: 20040707
  10. CIPROFLOXACIN [Concomitant]
     Dates: start: 20040722
  11. AMIKACIN [Concomitant]
     Dates: start: 20040722

REACTIONS (10)
  - BODY TEMPERATURE INCREASED [None]
  - CARDIO-RESPIRATORY ARREST [None]
  - CHOLESTASIS [None]
  - HEPATIC FAILURE [None]
  - HEPATOMEGALY [None]
  - HYPERSENSITIVITY [None]
  - HYPOGLOBULINAEMIA [None]
  - JAUNDICE [None]
  - PNEUMOCYSTIS CARINII PNEUMONIA [None]
  - THROMBOCYTOPENIA [None]
